FAERS Safety Report 9146648 (Version 2)
Quarter: 2013Q2

REPORT INFORMATION
  Report Type: Spontaneous
  Country: JP (occurrence: JP)
  Receive Date: 20130307
  Receipt Date: 20130424
  Transmission Date: 20140414
  Serious: Yes (Other)
  Sender: FDA-Public Use
  Company Number: JP-ROCHE-1198274

PATIENT
  Age: 36 Year
  Sex: Female

DRUGS (6)
  1. CELLCEPT [Suspect]
     Indication: PROPHYLAXIS AGAINST TRANSPLANT REJECTION
     Route: 048
  2. TACROLIMUS HYDRATE [Concomitant]
     Indication: PROPHYLAXIS AGAINST TRANSPLANT REJECTION
     Dosage: TARGET TROUGH VALUE: 10-15NG/ML
     Route: 065
  3. PIPERACILLIN SODIUM/TAZOBACTAM SODIUM [Concomitant]
     Indication: INFECTION PROPHYLAXIS
     Route: 065
  4. VORICONAZOLE [Concomitant]
     Indication: INFECTION PROPHYLAXIS
     Route: 065
  5. SULFAMETHOXAZOLE/TRIMETHOPRIM [Concomitant]
     Indication: INFECTION PROPHYLAXIS
     Route: 065
  6. DENOSINE [Concomitant]
     Indication: INFECTION PROPHYLAXIS
     Route: 065

REACTIONS (3)
  - Pneumonia pseudomonas aeruginosa [Unknown]
  - Bronchial anastomosis complication [Unknown]
  - Anastomotic haemorrhage [Unknown]
